FAERS Safety Report 20578701 (Version 1)
Quarter: 2022Q1

REPORT INFORMATION
  Report Type: Spontaneous
  Country: US (occurrence: None)
  Receive Date: 20220310
  Receipt Date: 20220310
  Transmission Date: 20220423
  Serious: Yes (Hospitalization)
  Sender: FDA-Public Use
  Company Number: None

PATIENT
  Age: 71 Year
  Sex: Male
  Weight: 171 kg

DRUGS (1)
  1. RIVAROXABAN [Suspect]
     Active Substance: RIVAROXABAN
     Indication: Atrial fibrillation
     Dosage: OTHER FREQUENCY : PM;?
     Route: 048
     Dates: start: 20191204, end: 20210126

REACTIONS (8)
  - Confusional state [None]
  - Aphasia [None]
  - Cerebral artery embolism [None]
  - Fall [None]
  - Circulatory collapse [None]
  - Transient ischaemic attack [None]
  - Treatment failure [None]
  - Therapy change [None]

NARRATIVE: CASE EVENT DATE: 20210126
